FAERS Safety Report 7572649-9 (Version None)
Quarter: 2011Q2

REPORT INFORMATION
  Report Type: 
  Country: None (occurrence: None)
  Receive Date: 20110627
  Receipt Date: 20110613
  Transmission Date: 20111010
  Serious: No
  Sender: FDA-Public Use
  Company Number: US-BIOGENIDEC-2011BI022868

PATIENT
  Sex: Female

DRUGS (6)
  1. COPAXONE [Concomitant]
     Indication: PRODUCT USED FOR UNKNOWN INDICATION
  2. TYSABRI [Suspect]
     Indication: PRODUCT USED FOR UNKNOWN INDICATION
     Route: 042
  3. TYSABRI [Suspect]
     Route: 042
  4. TYSABRI [Suspect]
     Route: 042
  5. TYSABRI [Suspect]
     Route: 042
  6. TYSABRI [Suspect]
     Route: 042

REACTIONS (5)
  - HYPERTONIC BLADDER [None]
  - BACK PAIN [None]
  - NEURALGIA [None]
  - HEADACHE [None]
  - BALANCE DISORDER [None]
